FAERS Safety Report 6436952-8 (Version None)
Quarter: 2009Q4

REPORT INFORMATION
  Report Type: 
  Country: None (occurrence: None)
  Receive Date: 20091112
  Receipt Date: 20091029
  Transmission Date: 20100525
  Serious: Yes (Life-Threatening, Hospitalization)
  Sender: FDA-Public Use
  Company Number: DE-RANBAXY-2009RR-29032

PATIENT
  Age: 83 Year
  Sex: Female
  Weight: 64 kg

DRUGS (9)
  1. BISOPROLOL [Suspect]
     Indication: CORONARY ARTERY DISEASE
     Dosage: 1.25 MG, QD
     Route: 048
     Dates: start: 20050101
  2. PROTAPHAN PENFILL [Suspect]
     Indication: TYPE 2 DIABETES MELLITUS
     Dosage: 30 IU, QD
     Route: 058
     Dates: start: 20070701, end: 20080410
  3. RAMIPRIL [Suspect]
     Indication: HYPERTENSION
     Dosage: 5 MG, BID
     Route: 048
     Dates: start: 20070701
  4. ACTRAPID PENFILL [Suspect]
     Indication: TYPE 2 DIABETES MELLITUS
     Dosage: UNK
     Route: 058
     Dates: start: 20070701, end: 20080410
  5. ALLOPURINOL [Concomitant]
     Indication: HYPERURICAEMIA
     Dosage: 100 MG, QD
     Route: 048
     Dates: end: 20080410
  6. BIFITERAL ^PHILIPS^ [Concomitant]
     Indication: CONSTIPATION
     Dosage: 667 MG, UNK
     Route: 048
     Dates: end: 20080410
  7. FURORESE [Concomitant]
     Indication: RENAL FAILURE
     Dosage: 40 MG, BID
     Route: 048
  8. PREGABALIN [Concomitant]
     Indication: DIABETIC NEUROPATHY
     Dosage: 75 MG, BID
     Route: 048
  9. XIPAMIDE [Concomitant]
     Indication: HYPERTENSION
     Dosage: 10 MG, QD
     Route: 048
     Dates: end: 20080410

REACTIONS (2)
  - DRUG INTERACTION [None]
  - HYPOGLYCAEMIA [None]
